FAERS Safety Report 8510057-4 (Version None)
Quarter: 2012Q3

REPORT INFORMATION
  Report Type: 
  Country: None (occurrence: None)
  Receive Date: 20120713
  Receipt Date: 20120705
  Transmission Date: 20120928
  Serious: Yes (Hospitalization, Other)
  Sender: FDA-Public Use
  Company Number: US-ASTRAZENECA-2009UW06128

PATIENT
  Age: 52 Year
  Sex: Female
  Weight: 85.3 kg

DRUGS (25)
  1. SEROQUEL XR [Suspect]
     Route: 048
     Dates: start: 20080101
  2. SEROQUEL XR [Suspect]
     Route: 048
  3. VERAPAMIL [Concomitant]
  4. CRESTOR [Suspect]
     Route: 048
     Dates: start: 20070101
  5. CRESTOR [Suspect]
     Route: 048
     Dates: start: 20070101
  6. CRESTOR [Suspect]
     Route: 048
     Dates: start: 20070101
  7. ASPIRIN [Concomitant]
  8. ALPRAZOLAM [Concomitant]
  9. PLAVIX [Concomitant]
  10. CARISOPRODOL [Concomitant]
  11. PERCOCET [Concomitant]
  12. LISINOPRIL [Concomitant]
     Indication: HYPERTENSION
  13. TRICOR [Concomitant]
  14. CRESTOR [Suspect]
     Indication: DYSLIPIDAEMIA
     Route: 048
     Dates: start: 20060101
  15. SEROQUEL XR [Suspect]
     Indication: DEPRESSION
     Route: 048
     Dates: start: 20060601
  16. DILANTIN [Concomitant]
     Indication: CONVULSION
  17. SEROQUEL XR [Suspect]
     Indication: BIPOLAR DISORDER
     Route: 048
     Dates: start: 20060601
  18. ACIPHEX [Concomitant]
  19. NITROGLYCERIN [Concomitant]
     Dosage: PRN
  20. CRESTOR [Suspect]
     Indication: BLOOD TRIGLYCERIDES INCREASED
     Route: 048
     Dates: start: 20060101
  21. CRESTOR [Suspect]
     Indication: BLOOD CHOLESTEROL INCREASED
     Route: 048
     Dates: start: 20060101
  22. CLONAZEPAM [Concomitant]
  23. SEROQUEL XR [Suspect]
     Route: 048
     Dates: start: 20080101
  24. SEROQUEL XR [Suspect]
     Route: 048
  25. LAMICTAL [Concomitant]

REACTIONS (5)
  - CONVULSION [None]
  - AMNESIA [None]
  - PULMONARY THROMBOSIS [None]
  - CEREBROVASCULAR ACCIDENT [None]
  - OFF LABEL USE [None]
